FAERS Safety Report 4545959-7 (Version None)
Quarter: 2005Q1

REPORT INFORMATION
  Report Type: 
  Country: None (occurrence: None)
  Receive Date: 20050103
  Receipt Date: 20041208
  Transmission Date: 20050727
  Serious: Yes (Other)
  Sender: FDA-Public Use
  Company Number: USA041285722

PATIENT
  Age: 84 Year
  Sex: Male

DRUGS (4)
  1. XIGRIS [Suspect]
     Indication: SEPSIS
     Dosage: 24 UG/KG/HR
     Dates: start: 20041206
  2. HEPARIN [Concomitant]
  3. DOPAMINE [Concomitant]
  4. LEVOPHED [Concomitant]

REACTIONS (1)
  - DEEP VEIN THROMBOSIS [None]
